FAERS Safety Report 6117424-7 (Version None)
Quarter: 2009Q1

REPORT INFORMATION
  Report Type: 
  Country: None (occurrence: None)
  Receive Date: 20090314
  Receipt Date: 20090119
  Transmission Date: 20090719
  Serious: No
  Sender: FDA-Public Use
  Company Number: US-ABBOTT-09P-163-0498788-00

PATIENT
  Sex: Female
  Weight: 93.524 kg

DRUGS (4)
  1. HUMIRA [Suspect]
     Indication: PSORIATIC ARTHROPATHY
     Dates: start: 20080501
  2. HUMIRA [Suspect]
     Indication: PSORIASIS
  3. COREG [Concomitant]
     Indication: HYPERTENSION
  4. CELEXA [Concomitant]
     Indication: BIPOLAR DISORDER

REACTIONS (7)
  - ABDOMINAL PAIN [None]
  - DARK CIRCLES UNDER EYES [None]
  - ENDOMETRIOSIS [None]
  - MENORRHAGIA [None]
  - POLYMENORRHOEA [None]
  - URINARY TRACT INFECTION [None]
  - WEIGHT INCREASED [None]
